FAERS Safety Report 12488769 (Version 2)
Quarter: 2016Q3

REPORT INFORMATION
  Report Type: Spontaneous
  Country: JP (occurrence: JP)
  Receive Date: 20160622
  Receipt Date: 20160728
  Transmission Date: 20161109
  Serious: Yes (Other)
  Sender: FDA-Public Use
  Company Number: JP-PFIZER INC-2016303955

PATIENT
  Age: 45 Year
  Sex: Male

DRUGS (1)
  1. CELECOX [Suspect]
     Active Substance: CELECOXIB
     Dosage: 200 MG, 2X/DAY
     Route: 048
     Dates: end: 20160707

REACTIONS (3)
  - Dysuria [Recovered/Resolved]
  - Urinary retention [Unknown]
  - Urine output decreased [Unknown]
